FAERS Safety Report 5813064-5 (Version None)
Quarter: 2008Q3

REPORT INFORMATION
  Report Type: 
  Country: None (occurrence: None)
  Receive Date: 20080717
  Receipt Date: 20071205
  Transmission Date: 20090109
  Serious: No
  Sender: FDA-Public Use
  Company Number: A0697416A

PATIENT
  Sex: Male

DRUGS (1)
  1. NICORETTE [Suspect]
     Dates: end: 20071202

REACTIONS (3)
  - TREMOR [None]
  - URTICARIA [None]
  - VOMITING [None]
